FAERS Safety Report 6194584-3 (Version None)
Quarter: 2009Q2

REPORT INFORMATION
  Report Type: 
  Country: None (occurrence: None)
  Receive Date: 20090519
  Receipt Date: 20090514
  Transmission Date: 20091009
  Serious: Yes (Life-Threatening, Hospitalization)
  Sender: FDA-Public Use
  Company Number: MX-ROCHE-633028

PATIENT
  Sex: Female
  Weight: 70 kg

DRUGS (2)
  1. CAPECITABINE [Suspect]
     Indication: BREAST CANCER
     Route: 048
     Dates: start: 20090408, end: 20090506
  2. MORPHINE HYDROCHLORIDE INJECTION [Concomitant]
     Dosage: DRUG NAME REPORTED: HIDROMORFONA

REACTIONS (5)
  - ALANINE AMINOTRANSFERASE INCREASED [None]
  - ASPARTATE AMINOTRANSFERASE INCREASED [None]
  - DYSPNOEA [None]
  - HYPERGLYCAEMIA [None]
  - THROMBOCYTOPENIA [None]
